FAERS Safety Report 9849372 (Version 2)
Quarter: 2014Q1

REPORT INFORMATION
  Report Type: Report from Study
  Country: US (occurrence: US)
  Receive Date: 20140128
  Receipt Date: 20140218
  Transmission Date: 20141002
  Serious: Yes (Other)
  Sender: FDA-Public Use
  Company Number: US-PURDUE-USA-2014-0110569

PATIENT
  Age: 50 Year
  Sex: Male

DRUGS (2)
  1. OXY CR TAB [Suspect]
     Indication: BACK PAIN
     Dosage: 80 MG, TID
     Route: 048
     Dates: start: 20131025
  2. OXY CR TAB [Suspect]
     Indication: RADICULITIS

REACTIONS (1)
  - Lung neoplasm malignant [Unknown]
